FAERS Safety Report 9432244 (Version 1)
Quarter: 2013Q3

REPORT INFORMATION
  Report Type: Spontaneous
  Country: US (occurrence: None)
  Receive Date: 20130730
  Receipt Date: 20130730
  Transmission Date: 20140515
  Serious: Yes (Death)
  Sender: FDA-Public Use
  Company Number: None

PATIENT
  Age: 77 Year
  Sex: Male
  Weight: 97 kg

DRUGS (2)
  1. RASBURICASE [Suspect]
     Indication: TUMOUR LYSIS SYNDROME
     Dosage: 19.5 MG ONCE  IV
     Route: 042
     Dates: start: 20130716, end: 20130716
  2. RASBURICASE [Suspect]
     Indication: BLOOD URIC ACID INCREASED
     Dosage: 19.5 MG ONCE  IV
     Route: 042
     Dates: start: 20130716, end: 20130716

REACTIONS (3)
  - Oxygen saturation decreased [None]
  - Blood methaemoglobin present [None]
  - Refusal of treatment by patient [None]
